FAERS Safety Report 8898439 (Version 2)
Quarter: 2012Q4

REPORT INFORMATION
  Report Type: 
  Country: US (occurrence: US)
  Receive Date: 20121109
  Receipt Date: 20121226
  Transmission Date: 20130627
  Serious: No
  Sender: FDA-Public Use
  Company Number: US-PFIZER INC-2012277832

PATIENT
  Age: 52 Year
  Sex: Female
  Weight: 54.42 kg

DRUGS (1)
  1. PREMPRO [Suspect]
     Indication: BLOOD ESTROGEN ABNORMAL
     Dosage: 0.625 mg/2.5 mg, daily
     Dates: start: 2010

REACTIONS (1)
  - Drug ineffective [Unknown]
